FAERS Safety Report 18394132 (Version 3)
Quarter: 2020Q4

REPORT INFORMATION
  Report Type: Spontaneous
  Country: US (occurrence: US)
  Receive Date: 20201017
  Receipt Date: 20201121
  Transmission Date: 20210114
  Serious: No
  Sender: FDA-Public Use
  Company Number: US-009507513-2010USA004191

PATIENT
  Age: 17 Year
  Sex: Female
  Weight: 123.63 kg

DRUGS (1)
  1. NEXPLANON [Suspect]
     Active Substance: ETONOGESTREL
     Indication: MENORRHAGIA
     Dosage: 1 IMPLANT, LEFT UPPER ARM
     Route: 059
     Dates: start: 20191231

REACTIONS (3)
  - Complication associated with device [Recovered/Resolved]
  - Product use in unapproved indication [Unknown]
  - Menorrhagia [Unknown]

NARRATIVE: CASE EVENT DATE: 20191231
